FAERS Safety Report 6642514-X (Version None)
Quarter: 2010Q1

REPORT INFORMATION
  Report Type: 
  Country: None (occurrence: None)
  Receive Date: 20100319
  Receipt Date: 20100309
  Transmission Date: 20100710
  Serious: Yes (Death)
  Sender: FDA-Public Use
  Company Number: AU-JNJFOC-20100303648

PATIENT
  Sex: Male

DRUGS (1)
  1. REOPRO [Suspect]
     Indication: ACUTE MYOCARDIAL INFARCTION
     Route: 042

REACTIONS (1)
  - CARDIAC DISORDER [None]
